FAERS Safety Report 15637253 (Version 1)
Quarter: 2018Q4

REPORT INFORMATION
  Report Type: Spontaneous
  Country: US (occurrence: US)
  Receive Date: 20181114
  Receipt Date: 20181114
  Transmission Date: 20190205
  Serious: Yes (Hospitalization)
  Sender: FDA-Public Use
  Company Number: None

PATIENT
  Age: 41 Year
  Sex: Female

DRUGS (1)
  1. CEPHALEXIN. [Suspect]
     Active Substance: CEPHALEXIN
     Route: 048
     Dates: start: 20180928, end: 20181010

REACTIONS (4)
  - Drug hypersensitivity [None]
  - Drug ineffective [None]
  - Documented hypersensitivity to administered product [None]
  - Erythema nodosum [None]

NARRATIVE: CASE EVENT DATE: 20181010
